FAERS Safety Report 8394118-9 (Version None)
Quarter: 2012Q2

REPORT INFORMATION
  Report Type: 
  Country: None (occurrence: None)
  Receive Date: 20120530
  Receipt Date: 20120523
  Transmission Date: 20120825
  Serious: Yes (Death)
  Sender: FDA-Public Use
  Company Number: EG-SANOFI-AVENTIS-2012SA037032

PATIENT
  Age: 56 Year
  Sex: Male

DRUGS (2)
  1. LANTUS [Suspect]
     Dosage: DOSE:10 UNIT(S)
     Route: 058
     Dates: start: 20100121, end: 20100423
  2. LANTUS [Suspect]
     Dosage: DOSE:12 UNIT(S)
     Route: 058
     Dates: start: 20100424, end: 20110423

REACTIONS (1)
  - DIABETIC FOOT [None]
